FAERS Safety Report 8469209 (Version 2)
Quarter: 2012Q4

REPORT INFORMATION
  Report Type: 
  Country: DE (occurrence: DE)
  Receive Date: 20120321
  Receipt Date: 20121025
  Transmission Date: 20130627
  Serious: Yes (Other)
  Sender: FDA-Public Use
  Company Number: DE-UCBSA-053373

PATIENT
  Age: 29 Year
  Sex: Female

DRUGS (3)
  1. VIMPAT [Suspect]
     Indication: EPILEPSY
     Route: 048
  2. LAMOTRIGINE [Suspect]
     Indication: EPILEPSY
     Dosage: (225-225-250) FOR TWO YEARS
     Route: 048
  3. FOLSAURE [Concomitant]
     Indication: PROPHYLAXIS OF NEURAL TUBE DEFECT
     Route: 048
     Dates: end: 201002

REACTIONS (4)
  - Caesarean section [Unknown]
  - Grand mal convulsion [Unknown]
  - Pregnancy [Unknown]
  - Exposure during pregnancy [None]
